FAERS Safety Report 5070152-1 (Version None)
Quarter: 2006Q3

REPORT INFORMATION
  Report Type: 
  Country: None (occurrence: None)
  Receive Date: 20060802
  Receipt Date: 20060802
  Transmission Date: 20061208
  Serious: Yes (Hospitalization)
  Sender: FDA-Public Use
  Company Number: None

PATIENT
  Age: 87 Year
  Sex: Male
  Weight: 73.1 kg

DRUGS (19)
  1. METOPROLOL TARTRATE [Suspect]
     Indication: CORONARY ARTERY DISEASE
     Dosage: 12.5 MG BID PO
     Route: 048
     Dates: start: 20060712, end: 20060714
  2. METOPROLOL TARTRATE [Suspect]
     Indication: HYPERTENSION
     Dosage: 12.5 MG BID PO
     Route: 048
     Dates: start: 20060712, end: 20060714
  3. FOSINOPRIL SODIUM [Suspect]
     Indication: HYPERTENSION
     Dosage: 20 MG DAILY PO
     Route: 048
     Dates: start: 20050428, end: 20060714
  4. ACETAMINOPHEN [Concomitant]
  5. AL HYD, MG HYD AND SIMETHIC [Concomitant]
  6. ALENDRONATE SODIUM [Concomitant]
  7. CALCIUM/VITAMIN D [Concomitant]
  8. CAPSAICIN CREAM [Concomitant]
  9. CLOPIDOGREL [Concomitant]
  10. FORMOTEROL INH [Concomitant]
  11. HYPTOMELLOSE [Concomitant]
  12. IPRATROPIUM /ALBUTEROL INH [Concomitant]
  13. IPRATROPIUM /ALBUTEOL INHL [Concomitant]
  14. LEVOFLOXACIN [Concomitant]
  15. LEVOTHYROXINE SODIUM [Concomitant]
  16. LORAZEPAM [Concomitant]
  17. MAGNESIUM HYDROXIDE TAB [Concomitant]
  18. MINERALS/MULTIVITAMINS [Concomitant]
  19. MIRTAZAPINE [Concomitant]

REACTIONS (7)
  - CHEST PAIN [None]
  - DRY MOUTH [None]
  - DYSPHAGIA [None]
  - PAROTID GLAND ENLARGEMENT [None]
  - SWELLING FACE [None]
  - TONGUE OEDEMA [None]
  - WHEEZING [None]
